FAERS Safety Report 8741218 (Version 3)
Quarter: 2013Q1

REPORT INFORMATION
  Report Type: Spontaneous
  Country: US (occurrence: US)
  Receive Date: 20120824
  Receipt Date: 20130114
  Transmission Date: 20140127
  Serious: Yes (Hospitalization)
  Sender: FDA-Public Use
  Company Number: CN-ASTRAZENECA-2011SE77283

PATIENT
  Age: 55 Year
  Sex: Female

DRUGS (4)
  1. SYMBICORT PMDI [Suspect]
     Indication: ASTHMA
     Dosage: 160/4.5, TWO PUFFS ONCE A DAY
     Route: 055
  2. TOPROL XL [Suspect]
     Indication: BLOOD PRESSURE ABNORMAL
     Route: 048
  3. SEROQUEL [Suspect]
     Indication: DEPRESSION
     Route: 048
  4. LEVENOX [Concomitant]

REACTIONS (14)
  - Sciatica [Unknown]
  - Adverse event [Unknown]
  - Infection [Unknown]
  - Epistaxis [Recovered/Resolved]
  - Blood potassium decreased [Unknown]
  - Abdominal pain lower [Unknown]
  - Pain in extremity [Unknown]
  - Back pain [Not Recovered/Not Resolved]
  - Limb discomfort [Not Recovered/Not Resolved]
  - Asthenia [Not Recovered/Not Resolved]
  - Headache [Unknown]
  - Off label use [Unknown]
  - Insomnia [Unknown]
  - Drug dose omission [Unknown]
